FAERS Safety Report 20790084 (Version 1)
Quarter: 2022Q2

REPORT INFORMATION
  Report Type: Spontaneous
  Country: US (occurrence: US)
  Receive Date: 20220505
  Receipt Date: 20220505
  Transmission Date: 20220721
  Serious: No
  Sender: FDA-Public Use
  Company Number: US-PFIZER INC-2020190924

PATIENT
  Age: 71 Year
  Sex: Female

DRUGS (1)
  1. XELJANZ XR [Suspect]
     Active Substance: TOFACITINIB CITRATE
     Dosage: 11 MG, DAILY (TAKE 1 TABLET (11 MG TOTAL) BY MOUTH ONCE DAILY)
     Route: 048

REACTIONS (6)
  - Product dose omission issue [Unknown]
  - Musculoskeletal stiffness [Unknown]
  - Rash [Unknown]
  - Rash macular [Unknown]
  - Herpes zoster [Unknown]
  - Visual impairment [Unknown]
